FAERS Safety Report 4365597-9 (Version None)
Quarter: 2004Q2

REPORT INFORMATION
  Report Type: 
  Country: None (occurrence: None)
  Receive Date: 20040526
  Receipt Date: 20040428
  Transmission Date: 20050107
  Serious: Yes (Hospitalization)
  Sender: FDA-Public Use
  Company Number: FR-MERCK-0404FRA00090

PATIENT
  Age: 77 Year
  Sex: Male
  Weight: 80 kg

DRUGS (6)
  1. ACETAMINOPHEN [Suspect]
     Route: 048
  2. PROSCAR [Suspect]
     Indication: PROSTATIC ADENOMA
     Route: 048
  3. GLYBURIDE [Suspect]
     Indication: DIABETES MELLITUS
     Route: 048
  4. LOPERAMIDE HYDROCHLORIDE [Suspect]
     Indication: DIARRHOEA
     Route: 048
     Dates: start: 20040326, end: 20040404
  5. PAROXETINE HYDROCHLORIDE [Suspect]
     Indication: DEPRESSION
     Route: 048
     Dates: start: 20040326, end: 20040329
  6. PHLOROGLUCINOL AND TRIMETHYLPHLOROGLUCINOL [Suspect]
     Route: 048

REACTIONS (1)
  - NEPHROTIC SYNDROME [None]
